FAERS Safety Report 7419270-0 (Version None)
Quarter: 2011Q2

REPORT INFORMATION
  Report Type: 
  Country: None (occurrence: None)
  Receive Date: 20110415
  Receipt Date: 20110408
  Transmission Date: 20111010
  Serious: Yes (Other)
  Sender: FDA-Public Use
  Company Number: US-ABBOTT-11P-163-0718526-00

PATIENT
  Sex: Male
  Weight: 74.456 kg

DRUGS (3)
  1. PIROXICAM [Concomitant]
     Indication: ANKYLOSING SPONDYLITIS
  2. HUMIRA [Suspect]
     Indication: ANKYLOSING SPONDYLITIS
     Dates: start: 20060101, end: 20110329
  3. TOPICAL CREAM [Concomitant]
     Indication: PSORIASIS

REACTIONS (7)
  - HYPOAESTHESIA [None]
  - UMBILICAL HERNIA [None]
  - PARAESTHESIA [None]
  - SENSORY LOSS [None]
  - HYPOTHYROIDISM [None]
  - HEADACHE [None]
  - FATIGUE [None]
